FAERS Safety Report 5572479-3 (Version None)
Quarter: 2007Q4

REPORT INFORMATION
  Report Type: 
  Country: None (occurrence: None)
  Receive Date: 20071219
  Receipt Date: 20071207
  Transmission Date: 20080405
  Serious: Yes (Hospitalization)
  Sender: FDA-Public Use
  Company Number: 2007AL005308

PATIENT
  Age: 82 Year
  Sex: Male

DRUGS (2)
  1. NAPROXEN [Suspect]
     Indication: OSTEOARTHRITIS
     Dosage: 500 MG; BID; PO
     Route: 048
     Dates: start: 20060801, end: 20070207
  2. IBUPROFEN [Concomitant]

REACTIONS (1)
  - RECTAL HAEMORRHAGE [None]
